FAERS Safety Report 9846208 (Version 1)
Quarter: 2014Q1

REPORT INFORMATION
  Report Type: Spontaneous
  Country: FR (occurrence: FR)
  Receive Date: 20140127
  Receipt Date: 20140127
  Transmission Date: 20141002
  Serious: Yes (Hospitalization)
  Sender: FDA-Public Use
  Company Number: FR-PFIZER INC-2014019134

PATIENT
  Age: 62 Year
  Sex: Male

DRUGS (5)
  1. CAMPTO [Suspect]
     Indication: PANCREATIC CARCINOMA METASTATIC
     Dosage: 260 MG, UNK
     Route: 041
     Dates: start: 20130816, end: 20130917
  2. OXALIPLATIN KABI [Concomitant]
     Indication: PANCREATIC CARCINOMA METASTATIC
  3. FLUOROURACIL ACCORD [Concomitant]
     Indication: PANCREATIC CARCINOMA METASTATIC
     Dosage: UNK
  4. ATROPINE SULFATE AGUETTANT [Concomitant]
     Indication: PANCREATIC CARCINOMA METASTATIC
  5. CALCIUM FOLINATE ZENTIVA [Concomitant]
     Indication: PANCREATIC CARCINOMA METASTATIC

REACTIONS (3)
  - Diarrhoea [Recovered/Resolved]
  - Dehydration [Recovered/Resolved]
  - Renal failure [Recovered/Resolved]
